FAERS Safety Report 7079622-8 (Version None)
Quarter: 2010Q4

REPORT INFORMATION
  Report Type: 
  Country: None (occurrence: None)
  Receive Date: 20101102
  Receipt Date: 20101020
  Transmission Date: 20110411
  Serious: Yes (Other)
  Sender: FDA-Public Use
  Company Number: PHHY2010DE62939

PATIENT
  Sex: Female
  Weight: 60 kg

DRUGS (2)
  1. DICLOFENAC SODIUM [Suspect]
     Indication: SCIATICA
     Dosage: 50 MG (IN MORNING AND NOON)
     Route: 054
     Dates: start: 20100901, end: 20100901
  2. DICLOFENAC SODIUM [Suspect]
     Dosage: 25 MG (IN EVENING)
     Route: 054
     Dates: start: 20100901, end: 20100901

REACTIONS (2)
  - ANORECTAL DISCOMFORT [None]
  - HAEMATOCHEZIA [None]
